FAERS Safety Report 20384527 (Version 1)
Quarter: 2022Q1

REPORT INFORMATION
  Report Type: Spontaneous
  Country: GT (occurrence: GT)
  Receive Date: 20220127
  Receipt Date: 20220127
  Transmission Date: 20220423
  Serious: Yes (Death)
  Sender: FDA-Public Use
  Company Number: GT-NOVARTISPH-NVSC2022GT017149

PATIENT
  Sex: Female

DRUGS (1)
  1. GLIVEC [Suspect]
     Active Substance: IMATINIB MESYLATE
     Indication: Chronic myeloid leukaemia
     Dosage: 400 MG (1X 400 MG)
     Route: 065

REACTIONS (4)
  - Death [Fatal]
  - Headache [Unknown]
  - Pain [Unknown]
  - Asthenia [Unknown]
